FAERS Safety Report 16122198 (Version 1)
Quarter: 2019Q1

REPORT INFORMATION
  Report Type: Spontaneous
  Country: US (occurrence: US)
  Receive Date: 20190327
  Receipt Date: 20190327
  Transmission Date: 20190418
  Serious: Yes (Other)
  Sender: FDA-Public Use
  Company Number: US-AMGEN-USASP2019047458

PATIENT
  Age: 72 Year
  Sex: Male
  Weight: 101.59 kg

DRUGS (1)
  1. PROCRIT [Suspect]
     Active Substance: ERYTHROPOIETIN
     Indication: ANAEMIA
     Dosage: UNK
     Route: 058
     Dates: start: 201703

REACTIONS (7)
  - Accidental exposure to product [Unknown]
  - Heart valve incompetence [Recovered/Resolved]
  - Product dose omission [Unknown]
  - Off label use [Unknown]
  - Haemoglobin abnormal [Not Recovered/Not Resolved]
  - Pulmonary hypertension [Recovered/Resolved]
  - Atrial fibrillation [Recovered/Resolved]

NARRATIVE: CASE EVENT DATE: 201703
